FAERS Safety Report 12755845 (Version 1)
Quarter: 2016Q3

REPORT INFORMATION
  Report Type: Report from Study
  Country: CO (occurrence: CO)
  Receive Date: 20160916
  Receipt Date: 20160916
  Transmission Date: 20161109
  Serious: Yes (Other)
  Sender: FDA-Public Use
  Company Number: CO-SA-2016SA169339

PATIENT
  Age: 48 Year
  Sex: Female
  Weight: 55 kg

DRUGS (2)
  1. LEMTRADA [Suspect]
     Active Substance: ALEMTUZUMAB
     Indication: MULTIPLE SCLEROSIS
     Route: 041
     Dates: start: 20160425, end: 20160430
  2. FAMPRIDINE [Concomitant]
     Active Substance: DALFAMPRIDINE
     Indication: ABASIA
     Route: 048

REACTIONS (3)
  - Leukopenia [Not Recovered/Not Resolved]
  - Lymphopenia [Not Recovered/Not Resolved]
  - Anaemia [Not Recovered/Not Resolved]

NARRATIVE: CASE EVENT DATE: 20160525
